FAERS Safety Report 6892125-6 (Version None)
Quarter: 2010Q3

REPORT INFORMATION
  Report Type: 
  Country: None (occurrence: None)
  Receive Date: 20100731
  Receipt Date: 20080122
  Transmission Date: 20110219
  Serious: No
  Sender: FDA-Public Use
  Company Number: US-PFIZER INC-2008004990

PATIENT
  Sex: Male
  Weight: 86.3 kg

DRUGS (7)
  1. CAVERJECT [Suspect]
     Indication: ERECTILE DYSFUNCTION
     Dates: start: 20070101
  2. LOVASTATIN [Concomitant]
  3. PRAMIPEXOLE DIHYDROCHLORIDE [Concomitant]
  4. SINEMET [Concomitant]
  5. METFORMIN HCL [Concomitant]
  6. PRIMIDONE [Concomitant]
  7. ACETYLSALICYLIC ACID SRT [Concomitant]

REACTIONS (1)
  - DRUG INEFFECTIVE [None]
